FAERS Safety Report 23758262 (Version 2)
Quarter: 2024Q2

REPORT INFORMATION
  Report Type: Spontaneous
  Country: US (occurrence: US)
  Receive Date: 20240418
  Receipt Date: 20240422
  Transmission Date: 20240716
  Serious: No
  Sender: FDA-Public Use
  Company Number: US-BRISTOL-MYERS SQUIBB COMPANY-2024-060977

PATIENT
  Age: 60 Year
  Sex: Female

DRUGS (3)
  1. ORENCIA [Suspect]
     Active Substance: ABATACEPT
     Indication: Rheumatoid arthritis
     Route: 058
     Dates: start: 201911
  2. KEVZARA [Concomitant]
     Active Substance: SARILUMAB
     Indication: Product used for unknown indication
     Dosage: (2 PENS/BOX)
  3. ACTEMRA [Concomitant]
     Active Substance: TOCILIZUMAB
     Indication: Product used for unknown indication
     Dosage: ACTEMRA PFS

REACTIONS (1)
  - Injection site reaction [Unknown]
